FAERS Safety Report 4668823-1 (Version None)
Quarter: 2005Q2

REPORT INFORMATION
  Report Type: 
  Country: None (occurrence: None)
  Receive Date: 20050523
  Receipt Date: 20030725
  Transmission Date: 20051028
  Serious: Yes (Death)
  Sender: FDA-Public Use
  Company Number: PH-2004-BP-03763RP

PATIENT
  Sex: Female

DRUGS (1)
  1. MICARDIS PLUS 40MG [Suspect]
     Indication: HYPERTENSION
     Route: 048
     Dates: start: 20030704

REACTIONS (1)
  - PNEUMONIA [None]
